FAERS Safety Report 9152796 (Version 1)
Quarter: 2013Q1

REPORT INFORMATION
  Report Type: Spontaneous
  Country: US (occurrence: US)
  Receive Date: 20130111
  Receipt Date: 20130111
  Transmission Date: 20140127
  Serious: Yes (Disabling)
  Sender: FDA-Public Use
  Company Number: US-MUTUAL PHARMACEUTICAL COMPANY, INC.-MTCD20130005

PATIENT
  Sex: Female

DRUGS (2)
  1. METOCLOPRAMIDE [Suspect]
     Indication: GASTROINTESTINAL DISORDER
     Route: 048
  2. REGLAN [Suspect]
     Indication: GASTROINTESTINAL DISORDER
     Route: 048

REACTIONS (3)
  - Condition aggravated [None]
  - Tardive dyskinesia [None]
  - Extrapyramidal disorder [None]
